FAERS Safety Report 8108078-9 (Version None)
Quarter: 2012Q1

REPORT INFORMATION
  Report Type: 
  Country: None (occurrence: None)
  Receive Date: 20120202
  Receipt Date: 20120124
  Transmission Date: 20120608
  Serious: Yes (Other)
  Sender: FDA-Public Use
  Company Number: GB-BRISTOL-MYERS SQUIBB COMPANY-16366619

PATIENT
  Sex: Male

DRUGS (2)
  1. SUSTIVA [Suspect]
  2. ATRIPLA [Suspect]
     Dosage: EFAVIRENZ 600MG + EMTRICITABINE 200MG + TENOFOVIR DISOPROXIL 245MG

REACTIONS (1)
  - PULMONARY TUBERCULOSIS [None]
